FAERS Safety Report 6788850-8 (Version None)
Quarter: 2010Q2

REPORT INFORMATION
  Report Type: 
  Country: None (occurrence: None)
  Receive Date: 20100621
  Receipt Date: 20090610
  Transmission Date: 20101027
  Serious: Yes (Other)
  Sender: FDA-Public Use
  Company Number: 7007659

PATIENT
  Sex: Female

DRUGS (2)
  1. GONAL-F [Suspect]
     Indication: IN VITRO FERTILISATION
  2. OTHER FERTILITY MEDICATIONS (ALL OTHER THERAPEUTIC PRODUCTS) [Suspect]
     Indication: IN VITRO FERTILISATION

REACTIONS (3)
  - ABORTION SPONTANEOUS [None]
  - DRUG EXPOSURE BEFORE PREGNANCY [None]
  - PREGNANCY [None]
